FAERS Safety Report 4835927-X (Version None)
Quarter: 2005Q4

REPORT INFORMATION
  Report Type: 
  Country: None (occurrence: None)
  Receive Date: 20051118
  Receipt Date: 20051110
  Transmission Date: 20060501
  Serious: Yes (Hospitalization, Other)
  Sender: FDA-Public Use
  Company Number: S05-USA-04906-01

PATIENT
  Age: 62 Year
  Sex: Male

DRUGS (2)
  1. LEXAPRO [Suspect]
     Dosage: 10 MG QD PO
     Route: 048
  2. INTRON A [Suspect]
     Indication: MALIGNANT MELANOMA
     Dosage: 19 MU TIW SC
     Route: 058
     Dates: start: 20041105

REACTIONS (3)
  - HALLUCINATION [None]
  - INAPPROPRIATE SCHEDULE OF DRUG ADMINISTRATION [None]
  - PSYCHOTIC DISORDER [None]
